FAERS Safety Report 16438027 (Version 2)
Quarter: 2019Q2

REPORT INFORMATION
  Report Type: Report from Study
  Country: DE (occurrence: DE)
  Receive Date: 20190617
  Receipt Date: 20190619
  Transmission Date: 20190711
  Serious: Yes (Hospitalization, Other)
  Sender: FDA-Public Use
  Company Number: DE-ROCHE-2331501

PATIENT
  Sex: Female
  Weight: 68 kg

DRUGS (6)
  1. OCRELIZUMAB. [Suspect]
     Active Substance: OCRELIZUMAB
     Route: 042
     Dates: start: 20181213
  2. PREGABALIN. [Concomitant]
     Active Substance: PREGABALIN
     Indication: NEURALGIA
     Dosage: ONGOING
     Route: 048
     Dates: start: 201710
  3. SPASMEX [TROSPIUM CHLORIDE] [Concomitant]
     Indication: BLADDER DYSFUNCTION
     Dosage: ONGOING
     Route: 048
     Dates: start: 20180815
  4. PREGABALIN. [Concomitant]
     Active Substance: PREGABALIN
     Indication: BURNING SENSATION
  5. DEKRISTOL [Concomitant]
     Active Substance: CHOLECALCIFEROL
     Indication: PROPHYLAXIS
     Dosage: ONGOING
     Route: 048
     Dates: start: 20181213
  6. OCRELIZUMAB. [Suspect]
     Active Substance: OCRELIZUMAB
     Indication: MULTIPLE SCLEROSIS
     Route: 042
     Dates: start: 20180604

REACTIONS (6)
  - Panic attack [Not Recovered/Not Resolved]
  - Hyperventilation [Recovering/Resolving]
  - Restlessness [Recovering/Resolving]
  - Thymus enlargement [Not Recovered/Not Resolved]
  - Anxiety [Not Recovered/Not Resolved]
  - Sinus tachycardia [Recovering/Resolving]

NARRATIVE: CASE EVENT DATE: 20190509
